FAERS Safety Report 4992726-6 (Version None)
Quarter: 2006Q1

REPORT INFORMATION
  Report Type: 
  Country: None (occurrence: None)
  Receive Date: 20060313
  Receipt Date: 20051130
  Transmission Date: 20060701
  Serious: No
  Sender: FDA-Public Use
  Company Number: 2005-BP-07786BP

PATIENT
  Age: 73 Year
  Sex: Female

DRUGS (11)
  1. SPIRIVA [Suspect]
     Indication: CHRONIC OBSTRUCTIVE PULMONARY DISEASE
     Dosage: 18 MCG (18 MCG, QD), IH
     Route: 055
     Dates: start: 20040701
  2. SPIRIVA [Suspect]
  3. FLOVENT [Concomitant]
  4. ALBUTEROL [Concomitant]
  5. SEREVENT [Concomitant]
  6. ACCOLATE [Concomitant]
  7. CAPTOPRIL [Concomitant]
  8. FUROSEMIDE [Concomitant]
  9. ISOSORBIDE (ISOSORBIDE) [Concomitant]
  10. POTASSIUM [Concomitant]
  11. RANITIDINE [Concomitant]

REACTIONS (1)
  - CHEST DISCOMFORT [None]
